FAERS Safety Report 8979785 (Version 1)
Quarter: 2012Q4

REPORT INFORMATION
  Report Type: 
  Country: DK (occurrence: DE)
  Receive Date: 20121221
  Receipt Date: 20121221
  Transmission Date: 20130627
  Serious: Yes (Other)
  Sender: FDA-Public Use
  Company Number: DE-FRI-1000041184

PATIENT
  Sex: Female

DRUGS (1)
  1. ESCITALOPRAM ORAL SOLUTION [Suspect]
     Route: 048

REACTIONS (2)
  - Drug-induced liver injury [Unknown]
  - Jaundice [Unknown]
